FAERS Safety Report 17008744 (Version 1)
Quarter: 2019Q4

REPORT INFORMATION
  Report Type: Spontaneous
  Country: FR (occurrence: FR)
  Receive Date: 20191108
  Receipt Date: 20191108
  Transmission Date: 20200122
  Serious: Yes (Other)
  Sender: FDA-Public Use
  Company Number: FR-SA-2019SA303150

PATIENT
  Age: 64 Year
  Sex: Female

DRUGS (5)
  1. PREDNISOLONE METASULPHOBENZOATE SODIUM [Suspect]
     Active Substance: PREDNISOLONE SODIUM METAZOATE
     Indication: PROPHYLAXIS
     Dosage: 80 MG, QCY
     Route: 048
     Dates: start: 20190917, end: 20190917
  2. APREPITANT. [Suspect]
     Active Substance: APREPITANT
     Indication: PROPHYLAXIS
     Dosage: 125 MG, QCY
     Route: 048
     Dates: start: 20190917, end: 20190917
  3. BEVACIZUMAB. [Suspect]
     Active Substance: BEVACIZUMAB
     Indication: COLON CANCER
     Dosage: 128 MG, QCY
     Route: 042
     Dates: start: 20190917, end: 20190917
  4. OXALIPLATIN. [Suspect]
     Active Substance: OXALIPLATIN
     Indication: COLON CANCER
     Dosage: 675 MG, QCY
     Route: 042
     Dates: start: 20190917, end: 20190917
  5. ONDANSETRON HYDROCHLORIDE. [Suspect]
     Active Substance: ONDANSETRON HYDROCHLORIDE
     Indication: PROPHYLAXIS
     Dosage: 8 MG, QCY
     Route: 048
     Dates: start: 20190917, end: 20190917

REACTIONS (1)
  - Hypersensitivity [Recovered/Resolved]

NARRATIVE: CASE EVENT DATE: 20190917
